FAERS Safety Report 18592185 (Version 9)
Quarter: 2022Q1

REPORT INFORMATION
  Report Type: Report from Study
  Country: CA (occurrence: CA)
  Receive Date: 20201208
  Receipt Date: 20220125
  Transmission Date: 20220423
  Serious: Yes (Death, Life-Threatening, Hospitalization, Other)
  Sender: FDA-Public Use
  Company Number: PHHY2018CA018674

PATIENT
  Age: 58 Year
  Sex: Male

DRUGS (8)
  1. SANDOSTATIN LAR DEPOT [Suspect]
     Active Substance: OCTREOTIDE ACETATE
     Indication: Neuroendocrine carcinoma
     Dosage: 60 MG, QMO
     Route: 030
     Dates: start: 20110830
  2. SANDOSTATIN LAR DEPOT [Suspect]
     Active Substance: OCTREOTIDE ACETATE
     Dosage: 30 MG, QMO (EVERY 4 WEEK)
     Route: 030
     Dates: start: 20110830
  3. SANDOSTATIN LAR DEPOT [Suspect]
     Active Substance: OCTREOTIDE ACETATE
     Dosage: 30 MG, QMO (EVERY 4 WEEKS)
     Route: 030
     Dates: start: 20191007
  4. SANDOSTATIN LAR DEPOT [Suspect]
     Active Substance: OCTREOTIDE ACETATE
     Dosage: UNK
     Route: 030
     Dates: start: 201910
  5. SANDOSTATIN LAR DEPOT [Suspect]
     Active Substance: OCTREOTIDE ACETATE
     Dosage: UNK
     Route: 030
  6. SANDOSTATIN LAR DEPOT [Suspect]
     Active Substance: OCTREOTIDE ACETATE
     Dosage: 30 MG, QMO
     Route: 030
  7. SANDOSTATIN LAR DEPOT [Suspect]
     Active Substance: OCTREOTIDE ACETATE
     Dosage: 30 MG, QMO
     Route: 030
     Dates: start: 20210430
  8. SANDOSTATIN LAR DEPOT [Suspect]
     Active Substance: OCTREOTIDE ACETATE
     Dosage: 60 MG, QMO
     Route: 030

REACTIONS (29)
  - Death [Fatal]
  - Carcinoid crisis [Unknown]
  - Feeling abnormal [Unknown]
  - Intestinal obstruction [Unknown]
  - Peritoneal neoplasm [Unknown]
  - Abdominal pain [Unknown]
  - Vomiting [Unknown]
  - Nausea [Unknown]
  - Pneumonia [Unknown]
  - Cachexia [Unknown]
  - Diarrhoea [Recovering/Resolving]
  - Bronchitis [Unknown]
  - Blood pressure decreased [Unknown]
  - Post procedural complication [Unknown]
  - Nasopharyngitis [Recovered/Resolved]
  - Testicular cyst [Unknown]
  - Condition aggravated [Recovering/Resolving]
  - Lethargy [Unknown]
  - Increased appetite [Unknown]
  - Weight increased [Unknown]
  - Incorrect dose administered [Unknown]
  - General physical health deterioration [Unknown]
  - Pallor [Unknown]
  - Hypokinesia [Unknown]
  - Asthenia [Unknown]
  - Dyspnoea [Recovered/Resolved]
  - Injection site pain [Recovered/Resolved]
  - Injection site pain [Unknown]
  - Drug ineffective [Unknown]

NARRATIVE: CASE EVENT DATE: 20180411
